FAERS Safety Report 13054545 (Version 2)
Quarter: 2017Q2

REPORT INFORMATION
  Report Type: Report from Study
  Country: JP (occurrence: JP)
  Receive Date: 20161222
  Receipt Date: 20170403
  Transmission Date: 20170830
  Serious: No
  Sender: FDA-Public Use
  Company Number: JP-ARIAD PHARMACEUTICALS, INC-2016JP007459

PATIENT
  Age: 63 Year
  Sex: Male
  Weight: 66 kg

DRUGS (13)
  1. AMLODIPINE BESILATE [Concomitant]
     Active Substance: AMLODIPINE BESYLATE
     Indication: HYPERTENSION
     Dosage: UNK
     Dates: start: 20141021
  2. PONATINIB [Suspect]
     Active Substance: PONATINIB
     Dosage: 15 MG, UNK
     Route: 048
     Dates: start: 20141129, end: 20150225
  3. PONATINIB [Suspect]
     Active Substance: PONATINIB
     Dosage: 15 MG, UNK
     Route: 048
     Dates: start: 20150227, end: 20150303
  4. PONATINIB [Suspect]
     Active Substance: PONATINIB
     Dosage: 30 MG, UNK
     Route: 048
     Dates: start: 20150304
  5. ASPIRIN. [Concomitant]
     Active Substance: ASPIRIN
     Indication: THROMBOSIS PROPHYLAXIS
     Dosage: UNK
     Dates: start: 20141021
  6. CARVEDILOL. [Concomitant]
     Active Substance: CARVEDILOL
     Indication: CARDIOVASCULAR EVENT PROPHYLAXIS
     Dosage: UNK
     Dates: start: 20141021
  7. ROSUVASTATIN CALCIUM. [Concomitant]
     Active Substance: ROSUVASTATIN CALCIUM
     Indication: PROPHYLAXIS
     Dosage: UNK
     Dates: start: 20140421
  8. PONATINIB [Suspect]
     Active Substance: PONATINIB
     Indication: CHRONIC MYELOID LEUKAEMIA
     Dosage: 45 MG, UNK
     Route: 048
     Dates: start: 20130821, end: 20131001
  9. PONATINIB [Suspect]
     Active Substance: PONATINIB
     Dosage: 15 MG, QD
     Route: 048
  10. AZILSARTAN [Concomitant]
     Active Substance: AZILSARTAN KAMEDOXOMIL
     Indication: HYPERTENSION
     Dosage: UNK
     Dates: start: 20141021
  11. PONATINIB [Suspect]
     Active Substance: PONATINIB
     Dosage: 15 MG, UNK
     Route: 048
     Dates: start: 20131113, end: 20141020
  12. NICORANDIL [Concomitant]
     Active Substance: NICORANDIL
     Indication: THROMBOSIS PROPHYLAXIS
     Dosage: UNK
     Dates: start: 20141021
  13. TOCOPHEROL [Concomitant]
     Active Substance: TOCOPHEROL
     Indication: DRY SKIN
     Dosage: UNK
     Dates: start: 20150424

REACTIONS (1)
  - Chest discomfort [Recovered/Resolved]

NARRATIVE: CASE EVENT DATE: 20160606
